FAERS Safety Report 14506558 (Version 1)
Quarter: 2018Q1

REPORT INFORMATION
  Report Type: Spontaneous
  Country: US (occurrence: US)
  Receive Date: 20180208
  Receipt Date: 20180208
  Transmission Date: 20180509
  Serious: Yes (Hospitalization)
  Sender: FDA-Public Use
  Company Number: None

PATIENT
  Age: 63 Year
  Sex: Female
  Weight: 74.8 kg

DRUGS (17)
  1. PSORINUM [Concomitant]
  2. FERROUS SULFATE. [Concomitant]
     Active Substance: FERROUS SULFATE
  3. LEVOTHYROXINE. [Concomitant]
     Active Substance: LEVOTHYROXINE
  4. INDERAL [Concomitant]
     Active Substance: PROPRANOLOL HYDROCHLORIDE
  5. GEMCITABINE NAB [Suspect]
     Active Substance: GEMCITABINE HYDROCHLORIDE
     Indication: PANCREATIC CARCINOMA
     Dosage: 28 DAY CYCLE IV
     Route: 042
     Dates: start: 20171213, end: 20180131
  6. HMF POWDER [Concomitant]
  7. VITAMIN D3 [Concomitant]
     Active Substance: CHOLECALCIFEROL
  8. ROXICODONE [Concomitant]
     Active Substance: OXYCODONE HYDROCHLORIDE
  9. ATENOLOL. [Concomitant]
     Active Substance: ATENOLOL
  10. COLACE [Concomitant]
     Active Substance: DOCUSATE SODIUM
  11. FILGRASTIM-SNDZ [Concomitant]
     Active Substance: FILGRASTIM-SNDZ
  12. FISH OIL [Concomitant]
     Active Substance: FISH OIL
  13. PACLITAXEL. [Suspect]
     Active Substance: PACLITAXEL
  14. PROTONIX [Concomitant]
     Active Substance: PANTOPRAZOLE SODIUM
  15. CREON [Concomitant]
     Active Substance: PANCRELIPASE AMYLASE\PANCRELIPASE LIPASE\PANCRELIPASE PROTEASE
  16. VITAMIN B12 [Concomitant]
     Active Substance: CYANOCOBALAMIN
  17. MULTIVITAMIN [Concomitant]
     Active Substance: VITAMINS

REACTIONS (3)
  - Pyrexia [None]
  - Cellulitis [None]
  - Pain in extremity [None]

NARRATIVE: CASE EVENT DATE: 20180203
